FAERS Safety Report 7857263-X (Version None)
Quarter: 2011Q4

REPORT INFORMATION
  Report Type: 
  Country: None (occurrence: None)
  Receive Date: 20111027
  Receipt Date: 20111017
  Transmission Date: 20120403
  Serious: Yes (Hospitalization)
  Sender: FDA-Public Use
  Company Number: US-BIOGENIDEC-2011BI039679

PATIENT
  Age: 51 Year
  Sex: Male

DRUGS (1)
  1. AVONEX [Suspect]
     Indication: MULTIPLE SCLEROSIS
     Route: 030
     Dates: start: 20100802

REACTIONS (5)
  - ROAD TRAFFIC ACCIDENT [None]
  - HYPOAESTHESIA [None]
  - CAROTID ARTERY STENT INSERTION [None]
  - POST-TRAUMATIC NECK SYNDROME [None]
  - NERVE BLOCK [None]
